FAERS Safety Report 7159720 (Version 6)
Quarter: 2012Q4

REPORT INFORMATION
  Report Type: 
  Country: US (occurrence: US)
  Receive Date: 20091027
  Receipt Date: 20121217
  Transmission Date: 20130627
  Serious: Yes (Death, Hospitalization, Other)
  Sender: FDA-Public Use
  Company Number: US-ELI_LILLY_AND_COMPANY-US200910005599

PATIENT
  Sex: Male

DRUGS (15)
  1. BYETTA [Suspect]
     Dosage: UNK, unknown
     Route: 058
     Dates: start: 20060110
  2. BYETTA [Suspect]
     Dosage: 10 ug, bid
     Route: 058
     Dates: end: 20070216
  3. HUMALOG [Concomitant]
  4. LANTUS                             /01483501/ [Concomitant]
  5. ACTOS [Concomitant]
  6. FLOMAX                             /00889901/ [Concomitant]
  7. AVODART [Concomitant]
  8. TOPROL [Concomitant]
  9. VYTORIN [Concomitant]
     Dosage: UNK, unknown
  10. LISINOPRIL [Concomitant]
  11. CREON [Concomitant]
  12. LOFIBRA [Concomitant]
  13. PREVACID [Concomitant]
  14. XALATAN [Concomitant]
  15. CILOSTAZOL [Concomitant]

REACTIONS (4)
  - Adenocarcinoma pancreas [Fatal]
  - Pancreatitis acute [Unknown]
  - Hospitalisation [Unknown]
  - Off label use [Unknown]
